FAERS Safety Report 24439618 (Version 1)
Quarter: 2024Q4

REPORT INFORMATION
  Report Type: Spontaneous
  Country: EE (occurrence: EE)
  Receive Date: 20241015
  Receipt Date: 20241015
  Transmission Date: 20250114
  Serious: Yes (Life-Threatening)
  Sender: B BRAUN
  Company Number: EE-B.Braun Medical Inc.-2163112

PATIENT
  Age: 85 Year
  Sex: Female
  Weight: 87 kg

DRUGS (4)
  1. ACETAMINOPHEN [Suspect]
     Active Substance: ACETAMINOPHEN
     Indication: Pain
  2. VALTREX [Suspect]
     Active Substance: VALACYCLOVIR HYDROCHLORIDE
  3. AMPICILLIN SODIUM\SULBACTAM SODIUM [Concomitant]
     Active Substance: AMPICILLIN SODIUM\SULBACTAM SODIUM
  4. PREGABALIN [Suspect]
     Active Substance: PREGABALIN

REACTIONS (4)
  - Loss of consciousness [Not Recovered/Not Resolved]
  - Acute kidney injury [Not Recovered/Not Resolved]
  - Tonic convulsion [Recovering/Resolving]
  - Coma [Not Recovered/Not Resolved]
